FAERS Safety Report 18078114 (Version 1)
Quarter: 2020Q3

REPORT INFORMATION
  Report Type: Spontaneous
  Country: US (occurrence: US)
  Receive Date: 20200727
  Receipt Date: 20200727
  Transmission Date: 20201103
  Serious: No
  Sender: FDA-Public Use
  Company Number: US-SEATTLE GENETICS-2020SGN02117

PATIENT
  Sex: Female

DRUGS (3)
  1. CAPECITABINE. [Concomitant]
     Active Substance: CAPECITABINE
     Indication: BREAST CANCER FEMALE
  2. TUKYSA [Suspect]
     Active Substance: TUCATINIB
     Indication: BREAST CANCER FEMALE
     Dosage: UNK
  3. TUKYSA [Suspect]
     Active Substance: TUCATINIB
     Indication: BREAST CANCER FEMALE
     Dosage: 2 DF, QD

REACTIONS (11)
  - Abdominal pain upper [Unknown]
  - Tenderness [Unknown]
  - Dyspnoea [Unknown]
  - Skin exfoliation [Unknown]
  - Speech disorder [Unknown]
  - Pain in extremity [Unknown]
  - Cough [Unknown]
  - Dysphagia [Unknown]
  - Nausea [Unknown]
  - Haematemesis [Unknown]
  - Dry skin [Unknown]
